FAERS Safety Report 4550653-2 (Version None)
Quarter: 2005Q1

REPORT INFORMATION
  Report Type: 
  Country: None (occurrence: None)
  Receive Date: 20050112
  Receipt Date: 20041207
  Transmission Date: 20050727
  Serious: Yes (Hospitalization)
  Sender: FDA-Public Use
  Company Number: BR-ABBOTT-04P-020-0282847-00

PATIENT
  Age: 35 Year
  Sex: Female

DRUGS (5)
  1. MERIDIA [Suspect]
     Indication: OVERWEIGHT
     Route: 048
     Dates: start: 20040101
  2. MERIDIA [Suspect]
     Route: 048
     Dates: start: 20041101
  3. SERTRALINE HYDROCHLORIDE [Concomitant]
     Indication: DEPRESSION
     Route: 048
     Dates: end: 20040701
  4. RISPERIDONE [Concomitant]
     Indication: PSYCHOTIC DISORDER
     Route: 048
     Dates: start: 20040814, end: 20041101
  5. OXCARBAZEPINE [Concomitant]
     Indication: AFFECTIVE DISORDER
     Route: 048
     Dates: start: 20040814

REACTIONS (6)
  - ABNORMAL BEHAVIOUR [None]
  - AGGRESSION [None]
  - DELUSION [None]
  - DYSPHORIA [None]
  - IRRITABILITY [None]
  - JUDGEMENT IMPAIRED [None]
